FAERS Safety Report 16226058 (Version 1)
Quarter: 2019Q2

REPORT INFORMATION
  Report Type: Spontaneous
  Country: GB (occurrence: GB)
  Receive Date: 20190423
  Receipt Date: 20190423
  Transmission Date: 20190711
  Serious: Yes (Other)
  Sender: FDA-Public Use
  Company Number: GB-TEVA-2019-GB-1040026

PATIENT
  Age: 31 Year
  Sex: Female
  Weight: 121.56 kg

DRUGS (3)
  1. CITALOPRAM HYDROBROMIDE. [Suspect]
     Active Substance: CITALOPRAM HYDROBROMIDE
     Route: 048
     Dates: start: 20190131, end: 20190202
  2. TOPIRAMATE. [Concomitant]
     Active Substance: TOPIRAMATE
  3. MEBEVERINE HYDROCHLORIDE [Concomitant]
     Active Substance: MEBEVERINE HYDROCHLORIDE

REACTIONS (6)
  - Decreased appetite [Recovered/Resolved with Sequelae]
  - Tremor [Recovered/Resolved]
  - Nausea [Recovered/Resolved]
  - Change of bowel habit [Not Recovered/Not Resolved]
  - Parosmia [Recovered/Resolved with Sequelae]
  - Food craving [Recovered/Resolved with Sequelae]

NARRATIVE: CASE EVENT DATE: 20190131
